FAERS Safety Report 9458038 (Version 3)
Quarter: 2014Q2

REPORT INFORMATION
  Report Type: Spontaneous
  Country: US (occurrence: US)
  Receive Date: 20130814
  Receipt Date: 20140416
  Transmission Date: 20141212
  Serious: Yes (Death, Hospitalization)
  Sender: FDA-Public Use
  Company Number: US-JNJFOC-20130805195

PATIENT
  Age: 75 Year
  Sex: Male

DRUGS (19)
  1. STELARA [Suspect]
     Indication: PSORIASIS
     Route: 058
     Dates: start: 20130220, end: 20130626
  2. STELARA [Suspect]
     Indication: PSORIASIS
     Route: 058
     Dates: start: 20130220, end: 20130626
  3. ALDACTONE [Concomitant]
     Route: 065
  4. AMBIEN [Concomitant]
     Route: 065
  5. ANTIVERT [Concomitant]
     Route: 065
  6. ATENOLOL [Concomitant]
     Route: 065
  7. BUSPAR [Concomitant]
     Route: 065
  8. COUMADIN [Concomitant]
     Route: 065
  9. LASIX [Concomitant]
     Route: 065
  10. INSULIN HUMULIN-R [Concomitant]
     Dosage: 500 UNIT PER ML
     Route: 065
  11. HYTRIN [Concomitant]
     Route: 065
  12. KLONOPIN [Concomitant]
     Route: 065
  13. LANOXIN [Concomitant]
     Route: 065
  14. LORTAB [Concomitant]
     Dosage: 5 MG TO 500 MG
     Route: 065
  15. NIASPAN [Concomitant]
     Route: 065
  16. PROMETHAZINE [Concomitant]
     Dosage: TABLET
     Route: 065
  17. PROTONIX [Concomitant]
     Route: 065
  18. RAPAFLO [Concomitant]
     Route: 065
  19. REQUIP [Concomitant]
     Route: 065

REACTIONS (1)
  - Cardiac failure congestive [Fatal]
